FAERS Safety Report 6565978-9 (Version None)
Quarter: 2010Q1

REPORT INFORMATION
  Report Type: 
  Country: None (occurrence: None)
  Receive Date: 20100201
  Receipt Date: 20091022
  Transmission Date: 20100710
  Serious: No
  Sender: FDA-Public Use
  Company Number: US-ALLERGAN-0914703US

PATIENT
  Sex: Female

DRUGS (5)
  1. ACUVAIL [Suspect]
     Indication: POSTOPERATIVE CARE
     Dosage: 1 GTT, BID
     Route: 047
     Dates: start: 20091007
  2. DUROZO [Concomitant]
     Indication: POST PROCEDURAL COMPLICATION
     Dosage: UNK
     Route: 047
  3. TRUSOPT [Concomitant]
     Indication: GLAUCOMA
  4. XALATAN [Concomitant]
     Indication: GLAUCOMA
  5. COMBIGAN [Concomitant]
     Indication: GLAUCOMA

REACTIONS (1)
  - INSTILLATION SITE PAIN [None]
